FAERS Safety Report 11461603 (Version 1)
Quarter: 2015Q3

REPORT INFORMATION
  Report Type: Spontaneous
  Country: US (occurrence: US)
  Receive Date: 20150831
  Receipt Date: 20150831
  Transmission Date: 20151125
  Serious: No
  Sender: FDA-Public Use
  Company Number: US-ELI_LILLY_AND_COMPANY-US201008003450

PATIENT
  Age: 19 Year
  Sex: Male

DRUGS (1)
  1. CYMBALTA [Suspect]
     Active Substance: DULOXETINE HYDROCHLORIDE
     Indication: BIPOLAR DISORDER

REACTIONS (6)
  - Hallucination [Unknown]
  - Medication error [Unknown]
  - Off label use [Unknown]
  - Antisocial behaviour [Unknown]
  - Emotional disorder [Unknown]
  - Overdose [Unknown]
